FAERS Safety Report 6132018-5 (Version None)
Quarter: 2009Q1

REPORT INFORMATION
  Report Type: 
  Country: None (occurrence: None)
  Receive Date: 20090325
  Receipt Date: 20090319
  Transmission Date: 20090719
  Serious: Yes (Hospitalization)
  Sender: FDA-Public Use
  Company Number: PHHY2009DE10702

PATIENT
  Age: 6 Year
  Sex: Female
  Weight: 85 kg

DRUGS (4)
  1. VOLTAREN [Suspect]
     Indication: PAIN
     Dosage: 50 MG, BID
     Route: 048
     Dates: start: 20090206, end: 20090216
  2. LEVOTHYROXINE SODIUM [Suspect]
     Indication: GOITRE
     Dosage: 75 UG, QD
     Route: 048
     Dates: start: 20050101
  3. BENALAPRIL [Concomitant]
     Indication: HYPERTENSION
     Dosage: 25 MG, QD
     Route: 048
     Dates: start: 20010101
  4. METOHEXAL [Concomitant]
     Indication: HYPERTENSION
     Dosage: 50 MG, QD
     Route: 048
     Dates: start: 20010101

REACTIONS (2)
  - HYPERTENSIVE CRISIS [None]
  - SUDDEN HEARING LOSS [None]
